FAERS Safety Report 4415702-0 (Version None)
Quarter: 2004Q2

REPORT INFORMATION
  Report Type: 
  Country: None (occurrence: None)
  Receive Date: 20040630
  Receipt Date: 20040331
  Transmission Date: 20050107
  Serious: Yes (Other)
  Sender: FDA-Public Use
  Company Number: 2004010631

PATIENT
  Age: 47 Year
  Sex: Female
  Weight: 80.2867 kg

DRUGS (2)
  1. ZOLOFT [Suspect]
     Indication: DEPRESSION
     Dosage: 50 MG (DAILY), ORAL
     Route: 048
     Dates: start: 19990101
  2. ANTIBIOTICS (ANTIBIOTICS) [Concomitant]

REACTIONS (3)
  - DEPRESSION [None]
  - GALACTORRHOEA [None]
  - SUICIDE ATTEMPT [None]
